FAERS Safety Report 8436507-X (Version None)
Quarter: 2012Q2

REPORT INFORMATION
  Report Type: 
  Country: None (occurrence: None)
  Receive Date: 20120614
  Receipt Date: 20120608
  Transmission Date: 20120825
  Serious: Yes (Hospitalization, Disabling, Other)
  Sender: FDA-Public Use
  Company Number: US-GLAXOSMITHKLINE-A0978456A

PATIENT
  Age: 76 Year
  Sex: Male

DRUGS (1)
  1. FLOLAN [Suspect]
     Dosage: 12MGKM UNKNOWN
     Route: 042
     Dates: start: 20120427

REACTIONS (5)
  - PAIN IN JAW [None]
  - GASTROENTERITIS NOROVIRUS [None]
  - DIARRHOEA [None]
  - VOMITING [None]
  - NAUSEA [None]
